FAERS Safety Report 8309426-7 (Version None)
Quarter: 2012Q2

REPORT INFORMATION
  Report Type: 
  Country: None (occurrence: None)
  Receive Date: 20120424
  Receipt Date: 20120424
  Transmission Date: 20120825
  Serious: Yes (Other)
  Sender: FDA-Public Use
  Company Number: None

PATIENT
  Sex: Female
  Weight: 99.7913 kg

DRUGS (3)
  1. TYVASO [Suspect]
     Indication: PULMONARY ARTERIAL HYPERTENSION
     Dosage: 6 INHALATIONS QID
     Route: 055
     Dates: start: 20120101, end: 20120301
  2. TRACLEER [Concomitant]
  3. ROBINUL [Concomitant]

REACTIONS (4)
  - LIP DRY [None]
  - CHEILITIS [None]
  - STOMATITIS [None]
  - DRY MOUTH [None]
